FAERS Safety Report 21822460 (Version 1)
Quarter: 2023Q1

REPORT INFORMATION
  Report Type: Spontaneous
  Country: US (occurrence: US)
  Receive Date: 20230105
  Receipt Date: 20230105
  Transmission Date: 20230418
  Serious: Yes (Hospitalization)
  Sender: FDA-Public Use
  Company Number: US-LUPIN PHARMACEUTICALS INC.-2022-14807

PATIENT
  Age: 63 Year
  Sex: Male

DRUGS (9)
  1. VORICONAZOLE [Suspect]
     Active Substance: VORICONAZOLE
     Indication: Cerebral aspergillosis
     Dosage: UNK
     Route: 065
     Dates: start: 2018
  2. VENETOCLAX [Suspect]
     Active Substance: VENETOCLAX
     Indication: Chronic lymphocytic leukaemia
     Dosage: 10 MG, QD
     Route: 065
  3. VENETOCLAX [Suspect]
     Active Substance: VENETOCLAX
     Dosage: 20 MG, QD
     Route: 065
  4. VENETOCLAX [Suspect]
     Active Substance: VENETOCLAX
     Dosage: 50 MG, QD
     Route: 065
  5. VENETOCLAX [Suspect]
     Active Substance: VENETOCLAX
     Dosage: 100 MG, QD
     Route: 065
  6. ALLOPURINOL [Concomitant]
     Active Substance: ALLOPURINOL
     Indication: Prophylaxis
     Dosage: 300 MG
     Route: 048
  7. SODIUM CHLORIDE [Concomitant]
     Active Substance: SODIUM CHLORIDE
     Indication: Prophylaxis
     Dosage: 125 MILLILITERS PER HOUR
     Route: 065
  8. RASBURICASE [Concomitant]
     Active Substance: RASBURICASE
     Indication: Prophylaxis
     Dosage: 3 MILLIGRAM
     Route: 065
  9. IBRUTINIB [Concomitant]
     Active Substance: IBRUTINIB
     Indication: Chronic lymphocytic leukaemia
     Dosage: UNK
     Route: 065

REACTIONS (1)
  - Contraindicated product administered [Unknown]
